FAERS Safety Report 7493977-1 (Version None)
Quarter: 2011Q2

REPORT INFORMATION
  Report Type: 
  Country: None (occurrence: None)
  Receive Date: 20110519
  Receipt Date: 20110519
  Transmission Date: 20111010
  Serious: Yes (Other)
  Sender: FDA-Public Use
  Company Number: None

PATIENT
  Age: 65 Year
  Sex: Male
  Weight: 97.5234 kg

DRUGS (1)
  1. TRAZODONE HCL [Suspect]
     Indication: DEPRESSION
     Dosage: 250MG
     Dates: start: 20100301, end: 20100510

REACTIONS (3)
  - INSOMNIA [None]
  - RESTLESSNESS [None]
  - MOOD ALTERED [None]
